FAERS Safety Report 6175532-9 (Version None)
Quarter: 2009Q2

REPORT INFORMATION
  Report Type: 
  Country: None (occurrence: None)
  Receive Date: 20090501
  Receipt Date: 20081208
  Transmission Date: 20091009
  Serious: Yes (Hospitalization)
  Sender: FDA-Public Use
  Company Number: US-ELI_LILLY_AND_COMPANY-US200812002391

PATIENT
  Sex: Male
  Weight: 106.12 kg

DRUGS (8)
  1. BYETTA [Suspect]
     Indication: TYPE 2 DIABETES MELLITUS
     Dosage: 5 UG, 2/D
     Route: 058
     Dates: start: 20060817, end: 20060901
  2. BYETTA [Suspect]
     Dosage: 10 UG, 2/D
     Route: 058
     Dates: start: 20060901, end: 20080906
  3. GLIPIZIDE [Concomitant]
     Indication: TYPE 2 DIABETES MELLITUS
  4. GLUCOPHAGE [Concomitant]
     Indication: TYPE 2 DIABETES MELLITUS
  5. ZESTRIL [Concomitant]
     Indication: HYPERTENSION
  6. MIRALAX [Concomitant]
     Indication: CONSTIPATION
     Dosage: 17 G, DAILY (1/D)
     Route: 048
     Dates: start: 20080320
  7. CIPROFLOXACIN HCL [Concomitant]
     Indication: CALCULUS URINARY
     Dosage: 500 MG, 2/D
     Route: 048
     Dates: start: 20080904, end: 20080906
  8. ASPIRIN [Concomitant]
     Dosage: 81 MG, DAILY (1/D)

REACTIONS (4)
  - CALCULUS URINARY [None]
  - HYPERKALAEMIA [None]
  - LIVER FUNCTION TEST ABNORMAL [None]
  - PANCREATITIS [None]
